FAERS Safety Report 24281121 (Version 4)
Quarter: 2024Q4

REPORT INFORMATION
  Report Type: Report from Study
  Country: CN (occurrence: CN)
  Receive Date: 20240904
  Receipt Date: 20241108
  Transmission Date: 20250114
  Serious: Yes (Death, Hospitalization)
  Sender: ROCHE
  Company Number: CN-ROCHE-10000070324

PATIENT
  Age: 50 Year
  Sex: Female

DRUGS (1)
  1. TARCEVA [Suspect]
     Active Substance: ERLOTINIB HYDROCHLORIDE
     Indication: Non-small cell lung cancer
     Route: 048
     Dates: start: 20170418

REACTIONS (3)
  - Platelet count decreased [Unknown]
  - Acute myeloid leukaemia [Unknown]
  - Leukaemia [Fatal]

NARRATIVE: CASE EVENT DATE: 20241101
